FAERS Safety Report 16572653 (Version 4)
Quarter: 2019Q4

REPORT INFORMATION
  Report Type: Spontaneous
  Country: US (occurrence: US)
  Receive Date: 20190715
  Receipt Date: 20191010
  Transmission Date: 20200122
  Serious: No
  Sender: FDA-Public Use
  Company Number: US-SA-2019SA186854

PATIENT
  Age: 84 Year
  Sex: Female

DRUGS (1)
  1. ALLEGRA D-12 HOUR [Suspect]
     Active Substance: FEXOFENADINE HYDROCHLORIDE\PSEUDOEPHEDRINE HYDROCHLORIDE
     Indication: FEELING ABNORMAL
     Dosage: 60/120 MG
     Route: 065

REACTIONS (3)
  - Therapeutic response decreased [Unknown]
  - Product residue present [Unknown]
  - Feeling abnormal [Not Recovered/Not Resolved]
